FAERS Safety Report 23516731 (Version 1)
Quarter: 2024Q1

REPORT INFORMATION
  Report Type: Spontaneous
  Country: CN (occurrence: CN)
  Receive Date: 20240213
  Receipt Date: 20240213
  Transmission Date: 20240409
  Serious: Yes (Life-Threatening)
  Sender: FDA-Public Use
  Company Number: CN-SHANGHAI JUNSHI BIOSCIENCES CO., LTD.-CN2024009284

PATIENT

DRUGS (3)
  1. TORIPALIMAB [Suspect]
     Active Substance: TORIPALIMAB
     Indication: Tonsil cancer
     Dosage: 240 MG (D2)
     Route: 041
     Dates: start: 20231222, end: 20231223
  2. CARBOPLATIN [Suspect]
     Active Substance: CARBOPLATIN
     Indication: Tonsil cancer
     Dosage: 0.38 G (D2)
     Route: 041
     Dates: start: 20231222, end: 20231223
  3. PACLITAXEL [Suspect]
     Active Substance: PACLITAXEL
     Indication: Tonsil cancer
     Dosage: 240 MG (D1)
     Route: 041
     Dates: start: 20231222, end: 20231222

REACTIONS (3)
  - Neutrophil count decreased [Recovering/Resolving]
  - White blood cell count decreased [Recovering/Resolving]
  - Off label use [Unknown]

NARRATIVE: CASE EVENT DATE: 20231222
